FAERS Safety Report 17316604 (Version 2)
Quarter: 2020Q1

REPORT INFORMATION
  Report Type: Spontaneous
  Country: AT (occurrence: AT)
  Receive Date: 20200124
  Receipt Date: 20200129
  Transmission Date: 20200409
  Serious: Yes (Death, Hospitalization, Other)
  Sender: FDA-Public Use
  Company Number: AT-009507513-2001AUT008554

PATIENT
  Age: 78 Year
  Sex: Male

DRUGS (4)
  1. JANUVIA [Suspect]
     Active Substance: SITAGLIPTIN PHOSPHATE
     Indication: DIABETES MELLITUS
     Dosage: UNK
     Route: 048
     Dates: end: 2019
  2. XIGDUO XR [Suspect]
     Active Substance: DAPAGLIFLOZIN PROPANEDIOL\METFORMIN HYDROCHLORIDE
     Dosage: UNK
     Dates: start: 20191110
  3. JANUVIA [Suspect]
     Active Substance: SITAGLIPTIN PHOSPHATE
     Dosage: UNK
     Route: 048
     Dates: start: 20191110
  4. XIGDUO XR [Suspect]
     Active Substance: DAPAGLIFLOZIN PROPANEDIOL\METFORMIN HYDROCHLORIDE
     Indication: DIABETES MELLITUS
     Dosage: UNK
     Dates: end: 2019

REACTIONS (9)
  - Delirium [Unknown]
  - Vomiting [Unknown]
  - Hypoglycaemia [Unknown]
  - Respiratory failure [Fatal]
  - Aspiration [Fatal]
  - Cardiac arrest [Unknown]
  - Condition aggravated [Unknown]
  - Lactic acidosis [Unknown]
  - Hip surgery [Recovering/Resolving]

NARRATIVE: CASE EVENT DATE: 201911
